FAERS Safety Report 13776197 (Version 2)
Quarter: 2017Q3

REPORT INFORMATION
  Report Type: Spontaneous
  Country: FR (occurrence: FR)
  Receive Date: 20170721
  Receipt Date: 20170822
  Transmission Date: 20171127
  Serious: Yes (Life-Threatening, Other)
  Sender: FDA-Public Use
  Company Number: FR-TEVA-788040ROM

PATIENT
  Age: 78 Year
  Sex: Female
  Weight: 69 kg

DRUGS (6)
  1. ZOPHREN [Concomitant]
     Active Substance: ONDANSETRON
     Indication: COLORECTAL CANCER
     Dosage: 8 MILLIGRAM DAILY;
     Route: 042
     Dates: start: 20170711, end: 20170712
  2. OXALIPLATINE TEVA 5 MG/ML [Suspect]
     Active Substance: OXALIPLATIN
     Dosage: SECOND DAY OF THE FIRST COURSE OF CHEMOTHERAPY
     Route: 041
     Dates: start: 20170712, end: 20170712
  3. SOLU-MEDROL [Concomitant]
     Active Substance: METHYLPREDNISOLONE SODIUM SUCCINATE
     Indication: COLORECTAL CANCER
     Dosage: 69 MILLIGRAM DAILY;
     Route: 042
     Dates: start: 20170711, end: 20170712
  4. OXALIPLATINE TEVA 5 MG/ML [Suspect]
     Active Substance: OXALIPLATIN
     Indication: COLORECTAL CANCER
     Dosage: FIRST DAY OF THE FIRST COURSE OF CHEMOTHERAPY
     Route: 041
     Dates: start: 20170711, end: 20170711
  5. ELVORINE [Concomitant]
     Active Substance: LEUCOVORIN CALCIUM
     Indication: COLORECTAL CANCER
     Dosage: 336 MILLIGRAM DAILY;
     Route: 042
     Dates: start: 20170711, end: 20170712
  6. PRIMPERAN [Concomitant]
     Active Substance: METOCLOPRAMIDE HYDROCHLORIDE
     Indication: COLORECTAL CANCER
     Dosage: 20 MILLIGRAM DAILY;
     Route: 042
     Dates: start: 20170711, end: 20170712

REACTIONS (4)
  - Hyperhidrosis [Recovered/Resolved]
  - Skin plaque [Recovered/Resolved]
  - Feeling hot [Recovered/Resolved]
  - Rash [Recovered/Resolved]

NARRATIVE: CASE EVENT DATE: 20170712
